FAERS Safety Report 15034357 (Version 1)
Quarter: 2018Q2

REPORT INFORMATION
  Report Type: Spontaneous
  Country: DE (occurrence: DE)
  Receive Date: 20180620
  Receipt Date: 20180620
  Transmission Date: 20180711
  Serious: Yes (Hospitalization)
  Sender: FDA-Public Use
  Company Number: DE-TEVA-2018-DE-908611

PATIENT
  Age: 63 Year
  Sex: Female
  Weight: 94.1 kg

DRUGS (13)
  1. ETOPOSID [Suspect]
     Active Substance: ETOPOSIDE
     Dosage: SCHEME, INJECTION / INFUSION
     Route: 042
  2. DOXORUBICIN [Suspect]
     Active Substance: DOXORUBICIN
     Dosage: SCHEME, INJECTION / INFUSION
     Route: 042
  3. TRAMAL [Concomitant]
     Active Substance: TRAMADOL
     Dosage: 1-1-1-0, DROPS
     Route: 048
  4. COTRIMOXAZOL [Concomitant]
     Active Substance: SULFAMETHOXAZOLE\TRIMETHOPRIM
     Dosage: 800|160 MG, SCHEME
     Route: 048
  5. ACICLOVIR [Concomitant]
     Active Substance: ACYCLOVIR
     Dosage: 1-1-1-1
     Route: 048
  6. PANTOPRAZOL [Concomitant]
     Active Substance: PANTOPRAZOLE SODIUM
     Dosage: 1-0-0-0
     Route: 048
  7. PREDNISOLON [Concomitant]
     Active Substance: PREDNISOLONE
     Dosage: 1-0-0-0
     Route: 048
  8. CYCLOPHOSPHAMID [Suspect]
     Active Substance: CYCLOPHOSPHAMIDE
     Dosage: SCHEME, INJECTION / INFUSION
     Route: 042
  9. PREGABALIN. [Concomitant]
     Active Substance: PREGABALIN
     Dosage: 1-0-1-0
     Route: 048
  10. ONDANSETRON [Concomitant]
     Active Substance: ONDANSETRON
     Dosage: REQUIREMENT
     Route: 048
  11. L-THYROXIN 125 [Concomitant]
     Dosage: 1-0-0-0
     Route: 048
  12. VINCRISTINE [Suspect]
     Active Substance: VINCRISTINE
     Dosage: SCHEME, INJECTION / INFUSION
     Route: 042
  13. TORASEMID [Concomitant]
     Active Substance: TORSEMIDE
     Dosage: 1-0-0-0
     Route: 048

REACTIONS (5)
  - Vomiting [Unknown]
  - Cough [Unknown]
  - Pyrexia [Unknown]
  - Nausea [Unknown]
  - Dysuria [Unknown]
